FAERS Safety Report 16815972 (Version 4)
Quarter: 2019Q4

REPORT INFORMATION
  Report Type: Report from Study
  Country: IT (occurrence: IT)
  Receive Date: 20190917
  Receipt Date: 20191221
  Transmission Date: 20200122
  Serious: Yes (Hospitalization)
  Sender: FDA-Public Use
  Company Number: IT-ACCORD-154897

PATIENT
  Age: 79 Year
  Sex: Female

DRUGS (6)
  1. HYDROCHLOROTHIAZIDE. [Suspect]
     Active Substance: HYDROCHLOROTHIAZIDE
     Indication: HYPERTENSION
     Route: 048
     Dates: end: 20190626
  2. ESOMEPRAZOLE/ESOMEPRAZOLE MAGNESIUM/ESOMEPRAZOLE SODIUM [Interacting]
     Active Substance: ESOMEPRAZOLE
     Indication: ULCER
     Dosage: 1 DF, QD
     Route: 048
     Dates: end: 20190626
  3. ESIDREX [Interacting]
     Active Substance: HYDROCHLOROTHIAZIDE
     Dosage: 1 DF, QD
     Route: 048
     Dates: end: 20190626
  4. LISINOPRIL. [Interacting]
     Active Substance: LISINOPRIL
     Indication: HYPERTENSION
     Dosage: 1 DF, QD
     Route: 048
     Dates: end: 20190626
  5. PRAMIPEXOLE/PRAMIPEXOLE DIHYDROCHLORIDE [Interacting]
     Active Substance: PRAMIPEXOLE DIHYDROCHLORIDE
     Indication: RESTLESS LEGS SYNDROME
     Route: 048
     Dates: end: 20190626
  6. DULOXETINE. [Interacting]
     Active Substance: DULOXETINE
     Indication: DEPRESSION
     Route: 048
     Dates: end: 20190626

REACTIONS (4)
  - Drug interaction [Unknown]
  - Off label use [Unknown]
  - Hypotension [Recovering/Resolving]
  - Hyponatraemia [Recovering/Resolving]

NARRATIVE: CASE EVENT DATE: 20190626
